FAERS Safety Report 21047570 (Version 1)
Quarter: 2022Q3

REPORT INFORMATION
  Report Type: Report from Study
  Country: US (occurrence: US)
  Receive Date: 20220706
  Receipt Date: 20220706
  Transmission Date: 20221027
  Serious: Yes (Hospitalization)
  Sender: FDA-Public Use
  Company Number: US-EXELIXIS-CABO-22053570

PATIENT
  Age: 74 Year
  Sex: Male
  Weight: 80.272 kg

DRUGS (4)
  1. CABOMETYX [Suspect]
     Active Substance: CABOZANTINIB S-MALATE
     Indication: Renal cell carcinoma
     Dosage: 40 MG, QD
     Route: 048
     Dates: start: 20220603
  2. DILTIAZEM [Concomitant]
     Active Substance: DILTIAZEM
  3. OMEPRAZOLE [Concomitant]
     Active Substance: OMEPRAZOLE
  4. LABETALOL HYDROCHLORIDE [Concomitant]
     Active Substance: LABETALOL HYDROCHLORIDE

REACTIONS (2)
  - Myocardial infarction [Unknown]
  - Speech disorder [Unknown]

NARRATIVE: CASE EVENT DATE: 20220616
